FAERS Safety Report 7248941-4 (Version None)
Quarter: 2011Q1

REPORT INFORMATION
  Report Type: 
  Country: None (occurrence: None)
  Receive Date: 20110128
  Receipt Date: 20100902
  Transmission Date: 20110831
  Serious: Yes (Hospitalization)
  Sender: FDA-Public Use
  Company Number: US-BAYER-201026663NA

PATIENT
  Sex: Female
  Weight: 92.517 kg

DRUGS (12)
  1. HEPARIN [Concomitant]
     Dosage: UNK
     Dates: end: 20080831
  2. BENADRYL [Concomitant]
     Dosage: UNK UNK, PRN
     Dates: start: 20080831
  3. MELATONIN [Concomitant]
     Dosage: UNK UNK, QD
     Dates: start: 20080831
  4. VITAMIN B-12 [Concomitant]
     Dosage: UNK UNK, QD
     Dates: start: 20080831
  5. IBUPROFEN [Concomitant]
     Dosage: UNK UNK, PRN
     Dates: start: 20080831
  6. FISH OIL [Concomitant]
     Dosage: UNK UNK, QD
     Dates: start: 20080831
  7. UNCODEABLE ^UNCLASSIFIABLE^ [Concomitant]
  8. YAZ [Suspect]
     Indication: CONTRACEPTION
     Route: 048
     Dates: start: 20080221, end: 20080826
  9. CHROMIUM CHLORIDE [Concomitant]
     Dosage: UNK UNK, QD
     Dates: start: 20080831
  10. CENTRUM [Concomitant]
     Dosage: UNK UNK, QD
     Dates: start: 20080831
  11. POTASSIUM [Concomitant]
     Dosage: UNK UNK, QD
     Dates: start: 20080831
  12. LORTAB [Concomitant]
     Indication: PAIN
     Dosage: 1 U, PRN
     Dates: start: 20080831

REACTIONS (6)
  - PAIN IN EXTREMITY [None]
  - OEDEMA PERIPHERAL [None]
  - HYPERHIDROSIS [None]
  - ASTHENIA [None]
  - DEEP VEIN THROMBOSIS [None]
  - SYNCOPE [None]
